FAERS Safety Report 4401084-7 (Version None)
Quarter: 2004Q3

REPORT INFORMATION
  Report Type: 
  Country: None (occurrence: None)
  Receive Date: 20040907
  Receipt Date: 20031021
  Transmission Date: 20050211
  Serious: No
  Sender: FDA-Public Use
  Company Number: US-BRISTOL-MYERS SQUIBB COMPANY-12416756

PATIENT
  Age: 69 Year
  Sex: Female
  Weight: 68 kg

DRUGS (3)
  1. COUMADIN [Suspect]
     Indication: ATRIAL FIBRILLATION
     Dosage: DOSAGE: 5MG AND 7.5MG ALTERNATING DAILY
     Route: 048
  2. TOPROL-XL [Concomitant]
     Indication: ATRIAL FIBRILLATION
  3. NORPACE CR [Concomitant]
     Indication: ATRIAL FIBRILLATION

REACTIONS (1)
  - DRUG SPECIFIC ANTIBODY PRESENT [None]
